FAERS Safety Report 7794468-0 (Version None)
Quarter: 2011Q4

REPORT INFORMATION
  Report Type: 
  Country: None (occurrence: None)
  Receive Date: 20111004
  Receipt Date: 20110919
  Transmission Date: 20120403
  Serious: Yes (Other)
  Sender: FDA-Public Use
  Company Number: ES-BIOGENIDEC-2011BI026221

PATIENT
  Age: 46 Year
  Sex: Female

DRUGS (6)
  1. TYSABRI [Suspect]
     Dates: start: 20090702, end: 20110617
  2. LORAZEPAM [Concomitant]
  3. VENTOLIN HFA [Concomitant]
     Indication: ASTHMA
  4. ANASMA [Concomitant]
  5. TYSABRI [Suspect]
     Indication: RELAPSING-REMITTING MULTIPLE SCLEROSIS
     Dates: start: 20080429, end: 20080429
  6. ESCITALOPRAM [Concomitant]

REACTIONS (2)
  - MULTIPLE SCLEROSIS RELAPSE [None]
  - MALAISE [None]
